FAERS Safety Report 9378199 (Version 2)
Quarter: 2013Q3

REPORT INFORMATION
  Report Type: Report from Study
  Country: ZA (occurrence: ZA)
  Receive Date: 20130701
  Receipt Date: 20130808
  Transmission Date: 20140515
  Serious: Yes (Hospitalization)
  Sender: FDA-Public Use
  Company Number: ZA-VIIV HEALTHCARE LIMITED-B0904137A

PATIENT
  Age: 21 Year
  Sex: Female
  Weight: 64.7 kg

DRUGS (7)
  1. ZIDOVUDINE [Suspect]
     Indication: HIV INFECTION
     Dosage: 300MG TWICE PER DAY
     Route: 048
     Dates: start: 20130607
  2. FERROUS SULPHATE [Concomitant]
     Indication: PROPHYLAXIS
     Route: 048
     Dates: start: 20130626
  3. FOLATE [Concomitant]
     Indication: PROPHYLAXIS
     Route: 048
     Dates: start: 20130626
  4. VITAMIN C [Concomitant]
     Indication: PROPHYLAXIS
     Route: 048
     Dates: start: 20130626
  5. AMOXIL [Concomitant]
     Dates: start: 20130620
  6. PARACETAMOL [Concomitant]
     Dates: start: 20130620
  7. GELUSIL [Concomitant]
     Dates: start: 20130620

REACTIONS (2)
  - Premature labour [Recovered/Resolved]
  - Exposure during pregnancy [Unknown]
